FAERS Safety Report 7204416-X (Version None)
Quarter: 2010Q4

REPORT INFORMATION
  Report Type: 
  Country: None (occurrence: None)
  Receive Date: 20101220
  Receipt Date: 20101209
  Transmission Date: 20110411
  Serious: Yes (Life-Threatening, Hospitalization)
  Sender: FDA-Public Use
  Company Number: 10-556

PATIENT
  Age: 40 Year
  Sex: Male

DRUGS (2)
  1. ANADIN (ASPIRIN, CAFFEINE, PARACETAMOL, QUININE SULFATE); IBUPROFEN [Suspect]
     Indication: ABDOMINAL PAIN UPPER
     Dosage: 2 DF/DAY;400 MG ORAL
     Route: 048
     Dates: start: 20100801, end: 20100901
  2. SALBUTAMOL [INHALATION] [Concomitant]

REACTIONS (1)
  - GASTRIC ULCER PERFORATION [None]
